FAERS Safety Report 7446820-0 (Version None)
Quarter: 2011Q2

REPORT INFORMATION
  Report Type: 
  Country: None (occurrence: None)
  Receive Date: 20110429
  Receipt Date: 20110210
  Transmission Date: 20111010
  Serious: No
  Sender: FDA-Public Use
  Company Number: US-ASTRAZENECA-2010SE48746

PATIENT
  Age: 65 Year
  Sex: Female

DRUGS (3)
  1. CRESTOR [Suspect]
     Route: 048
  2. NEXIUM [Suspect]
     Route: 048
  3. TOPROL-XL [Suspect]
     Route: 048

REACTIONS (9)
  - COUGH [None]
  - PNEUMONIA [None]
  - PAIN [None]
  - OESOPHAGEAL ULCER [None]
  - NASOPHARYNGITIS [None]
  - MALAISE [None]
  - BARRETT'S OESOPHAGUS [None]
  - HEADACHE [None]
  - DRUG DOSE OMISSION [None]
